FAERS Safety Report 4662597-6 (Version None)
Quarter: 2005Q2

REPORT INFORMATION
  Report Type: 
  Country: None (occurrence: None)
  Receive Date: 20050516
  Receipt Date: 20050406
  Transmission Date: 20051028
  Serious: Yes (Death, Hospitalization)
  Sender: FDA-Public Use
  Company Number: 2005CG00724

PATIENT
  Age: 80 Year
  Sex: Female

DRUGS (2)
  1. ARIMIDEX [Suspect]
     Indication: BREAST CANCER FEMALE
     Route: 048
     Dates: start: 20030101
  2. VITAMIN K ANTAGONISTS [Concomitant]

REACTIONS (3)
  - DEATH [None]
  - HEPATIC HAEMORRHAGE [None]
  - MIGRAINE [None]
